FAERS Safety Report 4845544-3 (Version None)
Quarter: 2005Q4

REPORT INFORMATION
  Report Type: 
  Country: None (occurrence: None)
  Receive Date: 20051201
  Receipt Date: 20051116
  Transmission Date: 20060501
  Serious: Yes (Death)
  Sender: FDA-Public Use
  Company Number: US016176

PATIENT
  Age: 25 Year
  Sex: Male

DRUGS (1)
  1. ACTIQ [Suspect]
     Dosage: 400 UG BUCCAL
     Route: 002

REACTIONS (3)
  - CARDIAC ARREST [None]
  - DRUG ABUSER [None]
  - RESPIRATORY ARREST [None]
